FAERS Safety Report 16056584 (Version 6)
Quarter: 2019Q2

REPORT INFORMATION
  Report Type: Spontaneous
  Country: KR (occurrence: KR)
  Receive Date: 20190311
  Receipt Date: 20190627
  Transmission Date: 20190711
  Serious: Yes (Hospitalization, Other)
  Sender: FDA-Public Use
  Company Number: KR-009507513-1903CHN001803

PATIENT
  Sex: Male

DRUGS (122)
  1. EMEND [Concomitant]
     Active Substance: APREPITANT
     Dosage: FREQUENCY: 1; DAYS: 1
     Route: 048
     Dates: start: 20190409, end: 20190409
  2. FOLIC ACID. [Concomitant]
     Active Substance: FOLIC ACID
     Dosage: UNK
     Dates: start: 20190528, end: 20190529
  3. GASMOTIN [Concomitant]
     Active Substance: MOSAPRIDE CITRATE
     Dosage: QUANTITY 3; DAYS 23
     Dates: start: 20190129, end: 20190208
  4. LASIX [Concomitant]
     Active Substance: FUROSEMIDE
     Dosage: QUANTITY 1; DAYS 2
     Dates: start: 20190131, end: 20190203
  5. BC MORPHINE SULFATE [Concomitant]
     Dosage: QUANTITY 4; DAYS 2, STRENGTH: 1 MG/ML
     Dates: start: 20190117, end: 20190124
  6. SODIUM CHLORIDE. [Concomitant]
     Active Substance: SODIUM CHLORIDE
     Dosage: 50 ML, UNK; QUANTITY: 1; DAYS: 1
     Dates: start: 20190226
  7. SODIUM CHLORIDE. [Concomitant]
     Active Substance: SODIUM CHLORIDE
     Dosage: 100 ML; QUANTITY: 3; DAYS: 1
     Dates: start: 20190319, end: 20190319
  8. SODIUM CHLORIDE. [Concomitant]
     Active Substance: SODIUM CHLORIDE
     Dosage: 150 ML; QUANTITY: 1; DAYS: 1
     Dates: start: 20190319, end: 20190319
  9. SODIUM CHLORIDE. [Concomitant]
     Active Substance: SODIUM CHLORIDE
     Dosage: 100 ML; QUANTITY: 3; DAYS: 1
     Dates: start: 20190430, end: 20190430
  10. SODIUM CHLORIDE. [Concomitant]
     Active Substance: SODIUM CHLORIDE
     Dosage: 150 ML; QUANTITY: 1; DAYS: 1
     Dates: start: 20190430, end: 20190430
  11. SODIUM CHLORIDE. [Concomitant]
     Active Substance: SODIUM CHLORIDE
     Dosage: UNK
     Dates: start: 20190528
  12. HUMULIN R [Concomitant]
     Active Substance: INSULIN HUMAN
     Dosage: QUANTITY 0.006; DAYS 14
     Dates: start: 20190106, end: 20190208
  13. HUMULIN R [Concomitant]
     Active Substance: INSULIN HUMAN
     Dosage: QUANTITY: 0.006; DAYS: 2
     Dates: start: 20190318, end: 20190320
  14. HUMULIN R [Concomitant]
     Active Substance: INSULIN HUMAN
     Dosage: QUANTITY: 0.006; DAYS: 1
     Dates: start: 20190429, end: 20190429
  15. KEYTRUDA [Suspect]
     Active Substance: PEMBROLIZUMAB
     Dosage: QUANTITY 2; DAYS 1
     Dates: start: 20190319
  16. KEYTRUDA [Suspect]
     Active Substance: PEMBROLIZUMAB
     Dosage: QUANTITY: 2; DAYS: 1
     Dates: start: 20190619, end: 20190619
  17. CISPLATIN. [Concomitant]
     Active Substance: CISPLATIN
     Indication: LUNG ADENOCARCINOMA
     Dosage: UNK
     Dates: start: 20190130
  18. GASMOTIN [Concomitant]
     Active Substance: MOSAPRIDE CITRATE
     Dosage: QUANTITY: 1; DAYS: 1
     Dates: start: 20190321, end: 20190321
  19. GASMOTIN [Concomitant]
     Active Substance: MOSAPRIDE CITRATE
     Dosage: FREQUENCY: 3; DAYS: 22
     Dates: start: 20190409, end: 20190410
  20. DEXAMETHASONE DISODIUM PHOSPHATE [Concomitant]
     Active Substance: DEXAMETHASONE SODIUM PHOSPHATE
     Dosage: QUANTITY 1; DAYS 3
     Dates: start: 20190130, end: 20190201
  21. BC MORPHINE SULFATE [Concomitant]
     Dosage: QUANTITY 3; DAYS 13, STRENGTH: 1 MG/ML
     Dates: start: 20190104, end: 20190127
  22. SODIUM CHLORIDE. [Concomitant]
     Active Substance: SODIUM CHLORIDE
     Dosage: 20 ML, QUANTITY 6; DAYS: 1
     Dates: start: 20190205
  23. SODIUM CHLORIDE. [Concomitant]
     Active Substance: SODIUM CHLORIDE
     Dosage: 10 ML, QUANTITY 1, DAYS 1
     Dates: start: 20190528
  24. SODIUM CHLORIDE. [Concomitant]
     Active Substance: SODIUM CHLORIDE
     Dosage: 1000 MILLILITER; QUANTITY 2; DAYS 2
     Dates: start: 20190107, end: 20190130
  25. FRUCTOSE (+) SODIUM CHLORIDE [Concomitant]
     Dosage: 500 ML, QUANTITY: 1; DAYS: 1
     Dates: start: 20190429, end: 20190429
  26. FRUCTOSE (+) SODIUM CHLORIDE [Concomitant]
     Dosage: 500 ML, QUANTITY 1, DAYS 2
     Dates: start: 20190527, end: 20190528
  27. HUMULIN R [Concomitant]
     Active Substance: INSULIN HUMAN
     Dosage: QUANTITY 0.004; DAYS 11
     Dates: start: 20190104, end: 20190203
  28. KEYTRUDA [Suspect]
     Active Substance: PEMBROLIZUMAB
     Indication: LUNG ADENOCARCINOMA
     Dosage: QUANTITY 2; DAYS 1
     Dates: start: 20190130
  29. KEYTRUDA [Suspect]
     Active Substance: PEMBROLIZUMAB
     Dosage: QUANTITY: 2; DAYS: 1
     Dates: start: 20190528
  30. FOLIC ACID. [Concomitant]
     Active Substance: FOLIC ACID
     Dosage: QUANTITY: 1; DAYS: 23
     Dates: start: 20190430, end: 20190502
  31. GASMOTIN [Concomitant]
     Active Substance: MOSAPRIDE CITRATE
     Dosage: QUANTITY: 1; DAYS: 1
     Dates: start: 20190227
  32. GASMOTIN [Concomitant]
     Active Substance: MOSAPRIDE CITRATE
     Dosage: QUANTITY: 3; DAYS: 22
     Dates: start: 20190430, end: 20190502
  33. GASMOTIN [Concomitant]
     Active Substance: MOSAPRIDE CITRATE
     Dosage: QUANTITY: 2; DAYS: 1
     Dates: start: 20190528
  34. LASIX [Concomitant]
     Active Substance: FUROSEMIDE
     Dosage: QUANTITY 2; DAYS 1
     Dates: start: 20190130
  35. BC MORPHINE SULFATE [Concomitant]
     Dosage: QUANTITY 1; DAYS 9, STRENGTH: 1 MG/ML
     Dates: start: 20181231, end: 20190206
  36. BC MORPHINE SULFATE [Concomitant]
     Dosage: QUANTITY: 1; DAYS: 2; STRENGTH: 1MG/ML
     Dates: start: 20190225, end: 20190227
  37. BC MORPHINE SULFATE [Concomitant]
     Dosage: QUANTITY: 2; DAYS: 1; STRENGTH: 1MG/ML
     Dates: start: 20190226
  38. SODIUM CHLORIDE. [Concomitant]
     Active Substance: SODIUM CHLORIDE
     Dosage: 10 MILLILITER; QUANTITY: 1, DAYS: 1
     Dates: start: 20190130
  39. SODIUM CHLORIDE. [Concomitant]
     Active Substance: SODIUM CHLORIDE
     Dosage: 20 ML; QUANTITY: 2, DAYS: 2
     Dates: start: 20190226, end: 20190227
  40. SODIUM CHLORIDE. [Concomitant]
     Active Substance: SODIUM CHLORIDE
     Dosage: 10 ML; QUANTITY: 1; DAYS: 1
     Dates: start: 20190319, end: 20190319
  41. SODIUM CHLORIDE. [Concomitant]
     Active Substance: SODIUM CHLORIDE
     Dosage: 1000 ML; QUANTITY: 1; DAYS: 1
     Dates: start: 20190318, end: 20190318
  42. HUMULIN R [Concomitant]
     Active Substance: INSULIN HUMAN
     Dosage: QUANTITY 0.002; DAYS 13
     Dates: start: 20190110, end: 20190204
  43. KEYTRUDA [Suspect]
     Active Substance: PEMBROLIZUMAB
     Dosage: QUANTITY: 2; DAYS: 1
     Dates: start: 20190430, end: 20190430
  44. DUPHALAC [Concomitant]
     Active Substance: LACTULOSE
     Dosage: QUANTITY: 1; DAYS: 2
     Dates: start: 20190528, end: 20190529
  45. EMEND [Concomitant]
     Active Substance: APREPITANT
     Dosage: QUANTITY: 1; DAYS: 1
     Route: 048
     Dates: start: 20190319, end: 20190320
  46. FOLIC ACID. [Concomitant]
     Active Substance: FOLIC ACID
     Dosage: 1MG, QUANTITY: 1; DAYS: 3
     Dates: start: 20190618, end: 20190620
  47. GASMOTIN [Concomitant]
     Active Substance: MOSAPRIDE CITRATE
     Dosage: QUANTITY: 3; DAYS: 25
     Dates: start: 20190319, end: 20190321
  48. GASMOTIN [Concomitant]
     Active Substance: MOSAPRIDE CITRATE
     Dosage: FREQUENCY: 1; DAYS: 1
     Dates: start: 20190410, end: 20190410
  49. SODIUM CHLORIDE. [Concomitant]
     Active Substance: SODIUM CHLORIDE
     Dosage: 100 M; QUANTITY: 3; DAYS: 1
     Dates: start: 20190226
  50. SODIUM CHLORIDE. [Concomitant]
     Active Substance: SODIUM CHLORIDE
     Dosage: 10 ML; QUANTITY: 1; DAYS: 1
     Dates: start: 20190430, end: 20190430
  51. SODIUM CHLORIDE. [Concomitant]
     Active Substance: SODIUM CHLORIDE
     Dosage: 1000 MILLILITER; QUANTITY: 1, DAYS: 1
     Dates: start: 20190225
  52. SODIUM CHLORIDE. [Concomitant]
     Active Substance: SODIUM CHLORIDE
     Dosage: 1000 ML; QUANTITY: 2; DAYS: 1
     Dates: start: 20190226
  53. PENIRAMIN [Concomitant]
     Dosage: QUANTITY 1; DAYS 1
     Dates: start: 20190130
  54. PENIRAMIN [Concomitant]
     Dosage: QUANTITY 3; DAYS 1
     Dates: start: 20190205
  55. PENIRAMIN [Concomitant]
     Dosage: 4MG/2ML/A, QUANTITY: 1; DAYS: 1
     Dates: start: 20190619, end: 20190619
  56. HUMULIN R [Concomitant]
     Active Substance: INSULIN HUMAN
     Dosage: QUANTITY 0.012; DAYS 7
     Dates: start: 20190103, end: 20190205
  57. HUMULIN R [Concomitant]
     Active Substance: INSULIN HUMAN
     Dosage: QUANTITY 0.016; DAYS 11
     Dates: start: 20190108, end: 20190206
  58. HUMULIN R [Concomitant]
     Active Substance: INSULIN HUMAN
     Dosage: QUANTITY: 0.008; DAYS: 2
     Dates: start: 20190318, end: 20190319
  59. HUMULIN R [Concomitant]
     Active Substance: INSULIN HUMAN
     Dosage: QUANTITY: 0.006; DAYS: 1
     Dates: start: 20190319, end: 20190319
  60. HUMULIN R [Concomitant]
     Active Substance: INSULIN HUMAN
     Dosage: QUANTITY: 0.002; DAYS: 1
     Dates: start: 20190501, end: 20190501
  61. ATIVAN [Concomitant]
     Active Substance: LORAZEPAM
     Dosage: QUANTITY 1; DAYS 1
     Dates: start: 20190130
  62. KEYTRUDA [Suspect]
     Active Substance: PEMBROLIZUMAB
     Dosage: QUANTITY 2; DAYS 1
     Dates: start: 20190226
  63. DUPHALAC [Concomitant]
     Active Substance: LACTULOSE
     Dosage: QUANTITY 2; DAYS 2
     Dates: start: 20190129, end: 20190202
  64. EMEND [Concomitant]
     Active Substance: APREPITANT
     Dosage: QUANTITY 1; DAYS 1
     Route: 048
     Dates: start: 20190130
  65. GASMOTIN [Concomitant]
     Active Substance: MOSAPRIDE CITRATE
     Dosage: QUANTITY: 2; DAYS: 1
     Dates: start: 20190225
  66. SODIUM CHLORIDE. [Concomitant]
     Active Substance: SODIUM CHLORIDE
     Dosage: 20 ML;  QUANTITY: 2, DAYS: 29
     Dates: start: 20181231, end: 20190207
  67. SODIUM CHLORIDE. [Concomitant]
     Active Substance: SODIUM CHLORIDE
     Dosage: 150 ML; QUANTITY: 1; DAYS: 1
     Dates: start: 20190130
  68. SODIUM CHLORIDE. [Concomitant]
     Active Substance: SODIUM CHLORIDE
     Dosage: 50 ML; QUANTITY: 1; DAYS: 1
     Dates: start: 20190430, end: 20190430
  69. PENIRAMIN [Concomitant]
     Dosage: QUANTITY: 1; DAYS: 1
     Dates: start: 20190430, end: 20190430
  70. FRUCTOSE (+) SODIUM CHLORIDE [Concomitant]
     Dosage: 500 MILLILITER; QUANTITY 1; DAYS 28
     Dates: start: 20190110, end: 20190207
  71. FRUCTOSE (+) SODIUM CHLORIDE [Concomitant]
     Dosage: 500 ML, QUANTITY: 3; DAYS: 1
     Dates: start: 20190430, end: 20190430
  72. HUMULIN R [Concomitant]
     Active Substance: INSULIN HUMAN
     Dosage: QUANTITY: 0.006; DAYS: 1
     Dates: start: 20190226
  73. HUMULIN R [Concomitant]
     Active Substance: INSULIN HUMAN
     Dosage: QUANTITY: 0.016; DAYS: 1
     Dates: start: 20190320, end: 20190320
  74. HUMULIN R [Concomitant]
     Active Substance: INSULIN HUMAN
     Dosage: QUANTITY: 0.002; DAYS: 1
     Dates: start: 20190320, end: 20190320
  75. HUMULIN R [Concomitant]
     Active Substance: INSULIN HUMAN
     Dosage: QUANTITY: 0.004; DAYS: 1
     Dates: start: 20190430, end: 20190430
  76. DIAMICRON [Concomitant]
     Active Substance: GLICLAZIDE
     Dosage: QUANTITY 2; DAYS 44
     Dates: start: 20190110, end: 20190208
  77. DUPHALAC [Concomitant]
     Active Substance: LACTULOSE
     Dosage: QUANTITY 1; DAYS 15
     Dates: start: 20190118, end: 20190208
  78. DUPHALAC [Concomitant]
     Active Substance: LACTULOSE
     Dosage: QUANTITY: 1; DAYS: 18
     Dates: start: 20190319, end: 20190321
  79. DUPHALAC [Concomitant]
     Active Substance: LACTULOSE
     Dosage: FREQUENCY: 1; DAYS: 14
     Dates: start: 20190410, end: 20190410
  80. DUPHALAC [Concomitant]
     Active Substance: LACTULOSE
     Dosage: QUANTITY: 1; DAYS: 20
     Dates: start: 20190502
  81. FOLIC ACID. [Concomitant]
     Active Substance: FOLIC ACID
     Dosage: FREQUENCY: 1; DAYS: 23
     Dates: start: 20190409, end: 20190410
  82. BC MORPHINE SULFATE [Concomitant]
     Dosage: QUANTITY 2; DAYS 13, STRENGTH: 1 MG/ML
     Dates: start: 20181230, end: 20190207
  83. SODIUM CHLORIDE. [Concomitant]
     Active Substance: SODIUM CHLORIDE
     Dosage: 100 ML; QUANTITY: 3, DAYS: 2
     Dates: start: 20190130, end: 20190205
  84. SODIUM CHLORIDE. [Concomitant]
     Active Substance: SODIUM CHLORIDE
     Dosage: 10 ML; QUANTITY: 1; DAYS: 1
     Dates: start: 20190226
  85. SODIUM CHLORIDE. [Concomitant]
     Active Substance: SODIUM CHLORIDE
     Dosage: 1000 ML; QUANTITY: 2; DAYS: 1
     Dates: start: 20190430, end: 20190430
  86. PENIRAMIN [Concomitant]
     Dosage: QUANTITY: 1; DAYS: 1
     Dates: start: 20190226
  87. HUMULIN R [Concomitant]
     Active Substance: INSULIN HUMAN
     Dosage: QUANTITY 0.008; DAYS 18
     Dates: start: 20190101, end: 20190207
  88. HUMULIN R [Concomitant]
     Active Substance: INSULIN HUMAN
     Dosage: QUANTITY: 0.004; DAYS: 2
     Dates: start: 20190225, end: 20190227
  89. HUMULIN R [Concomitant]
     Active Substance: INSULIN HUMAN
     Dosage: QUANTITY: 0.008; DAYS: 1
     Dates: start: 20190226
  90. ATIVAN [Concomitant]
     Active Substance: LORAZEPAM
     Dosage: QUANTITY: 1; DAYS: 1
     Dates: start: 20190430, end: 20190430
  91. KEYTRUDA [Suspect]
     Active Substance: PEMBROLIZUMAB
     Dosage: CONCENTRATION: 100 MG/ VIAL; FREQUENCY: 2; DAYS: 1
     Dates: start: 20190409
  92. FOLIC ACID. [Concomitant]
     Active Substance: FOLIC ACID
     Dosage: QUANTITY 1; DAYS 3
     Dates: start: 20190129, end: 20190131
  93. GASMOTIN [Concomitant]
     Active Substance: MOSAPRIDE CITRATE
     Dosage: QUANTITY: 3; DAYS: 15
     Dates: start: 20190226, end: 20190227
  94. GASMOTIN [Concomitant]
     Active Substance: MOSAPRIDE CITRATE
     Dosage: QUANTITY: 2; DAYS: 1
     Dates: start: 20190318, end: 20190318
  95. GASMOTIN [Concomitant]
     Active Substance: MOSAPRIDE CITRATE
     Dosage: FREQUENCY: 2; DAYS: 1
     Dates: start: 20190408, end: 20190408
  96. GASMOTIN [Concomitant]
     Active Substance: MOSAPRIDE CITRATE
     Dosage: QUANTITY: 1; DAYS: 2
     Dates: start: 20190429, end: 20190502
  97. GASMOTIN [Concomitant]
     Active Substance: MOSAPRIDE CITRATE
     Dosage: QUANTITY: 1; DAYS: 2
     Dates: start: 20190527, end: 20190529
  98. LASIX [Concomitant]
     Active Substance: FUROSEMIDE
     Dosage: QUANTITY: 2; DAYS: 1
     Dates: start: 20190226
  99. LASIX [Concomitant]
     Active Substance: FUROSEMIDE
     Dosage: QUANTITY: 2; DAYS: 1
     Dates: start: 20190430, end: 20190430
  100. SODIUM CHLORIDE. [Concomitant]
     Active Substance: SODIUM CHLORIDE
     Dosage: 100 ML; QUANTITY: 1, DAYS: 3
     Dates: start: 20190202, end: 20190204
  101. SODIUM CHLORIDE. [Concomitant]
     Active Substance: SODIUM CHLORIDE
     Dosage: 50 ML; QUANTITY: 1; DAYS: 1
     Dates: start: 20190130
  102. SODIUM CHLORIDE. [Concomitant]
     Active Substance: SODIUM CHLORIDE
     Dosage: 1000 ML; QUANTITY: 2; DAYS: 1
     Dates: start: 20190319, end: 20190319
  103. SODIUM CHLORIDE. [Concomitant]
     Active Substance: SODIUM CHLORIDE
     Dosage: 100 ML, QUANTITY 3, DAYS 1
     Dates: start: 20190528
  104. FRUCTOSE (+) SODIUM CHLORIDE [Concomitant]
     Dosage: 500 MILLILITER; QUANTITY 3; DAYS 1
     Dates: start: 20190205
  105. FRUCTOSE (+) SODIUM CHLORIDE [Concomitant]
     Dosage: 500 ML; QUANTITY: 3; DAYS: 1
     Dates: start: 20190319, end: 20190319
  106. HUMULIN R [Concomitant]
     Active Substance: INSULIN HUMAN
     Dosage: QUANTITY 0.018; DAYS 2
     Dates: start: 20190116, end: 20190207
  107. HUMULIN R [Concomitant]
     Active Substance: INSULIN HUMAN
     Dosage: QUANTITY: 0.008; DAYS: 1
     Dates: start: 20190501, end: 20190501
  108. HUMULIN R [Concomitant]
     Active Substance: INSULIN HUMAN
     Dosage: QUANTITY: 0.004; DAYS: 1
     Dates: start: 20190618, end: 20190618
  109. ATIVAN [Concomitant]
     Active Substance: LORAZEPAM
     Dosage: QUANTITY: 1; DAYS: 1
     Dates: start: 20190226
  110. PEMETREXED DISODIUM [Concomitant]
     Active Substance: PEMETREXED DISODIUM
     Indication: LUNG ADENOCARCINOMA
     Dosage: UNK
     Dates: start: 20190130
  111. DIAMICRON [Concomitant]
     Active Substance: GLICLAZIDE
     Dosage: QUANTITY: 2, DAYS: 16
     Dates: start: 20190226, end: 20190227
  112. DUPHALAC [Concomitant]
     Active Substance: LACTULOSE
     Dosage: QUANTITY: 1, DAYS: 16
     Dates: start: 20190226, end: 20190227
  113. EMEND [Concomitant]
     Active Substance: APREPITANT
     Dosage: QUANTITY: 1; DAYS: 1
     Route: 048
     Dates: start: 20190226
  114. EMEND [Concomitant]
     Active Substance: APREPITANT
     Dosage: QUANTITY: 1; DAYS: 1
     Dates: start: 20190430, end: 20190430
  115. FOLIC ACID. [Concomitant]
     Active Substance: FOLIC ACID
     Dosage: QUANTITY: 1; DAYS: 17
     Dates: start: 20190225, end: 20190227
  116. FOLIC ACID. [Concomitant]
     Active Substance: FOLIC ACID
     Dosage: QUANTITY: 1; DAYS: 26
     Dates: start: 20190319, end: 20190321
  117. DEXAMETHASONE DISODIUM PHOSPHATE [Concomitant]
     Active Substance: DEXAMETHASONE SODIUM PHOSPHATE
     Dosage: QUANTITY: 1; DAYS: 2
     Dates: start: 20190226, end: 20190227
  118. SODIUM CHLORIDE. [Concomitant]
     Active Substance: SODIUM CHLORIDE
     Dosage: 150 ML; QUANTITY: 1; DAYS: 1
     Dates: start: 20190226
  119. SODIUM CHLORIDE. [Concomitant]
     Active Substance: SODIUM CHLORIDE
     Dosage: 50 ML; QUANTITY: 1; DOSE: 1
     Dates: start: 20190319, end: 20190319
  120. SODIUM CHLORIDE. [Concomitant]
     Active Substance: SODIUM CHLORIDE
     Dosage: 1000 MILLILITER; QUANTITY: 1, DAYS: 2
     Dates: start: 20190102, end: 20190129
  121. FRUCTOSE (+) SODIUM CHLORIDE [Concomitant]
     Dosage: 500 ML; QUANTITY: 1; DAYS: 2
     Dates: start: 20190226, end: 20190227
  122. FRUCTOSE (+) SODIUM CHLORIDE [Concomitant]
     Dosage: 500 ML; QUANTITY: 2; DAYS: 1
     Dates: start: 20190320, end: 20190320

REACTIONS (6)
  - Adverse event [Unknown]
  - Oxygen therapy [Unknown]
  - Adverse event [Unknown]
  - Adverse event [Unknown]
  - Adverse event [Unknown]
  - Adverse event [Unknown]

NARRATIVE: CASE EVENT DATE: 2019
